FAERS Safety Report 11607303 (Version 1)
Quarter: 2015Q4

REPORT INFORMATION
  Report Type: Spontaneous
  Country: FR (occurrence: FR)
  Receive Date: 20151007
  Receipt Date: 20151007
  Transmission Date: 20160304
  Serious: Yes (Hospitalization)
  Sender: FDA-Public Use
  Company Number: FR-SA-2015SA151341

PATIENT
  Age: 79 Year
  Sex: Male

DRUGS (5)
  1. CELIPROLOL [Concomitant]
     Active Substance: CELIPROLOL
  2. NIFEDIPINE. [Concomitant]
     Active Substance: NIFEDIPINE
  3. PLAVIX [Suspect]
     Active Substance: CLOPIDOGREL BISULFATE
     Route: 048
     Dates: start: 2010, end: 201410
  4. EZETROL [Concomitant]
     Active Substance: EZETIMIBE
  5. MICARDIS [Concomitant]
     Active Substance: TELMISARTAN
     Dosage: STRENGTH: 80MG TABLET
     Route: 048

REACTIONS (2)
  - Eosinophilia [Recovering/Resolving]
  - Interstitial lung disease [Unknown]

NARRATIVE: CASE EVENT DATE: 20141015
